FAERS Safety Report 14174907 (Version 3)
Quarter: 2018Q1

REPORT INFORMATION
  Report Type: Spontaneous
  Country: US (occurrence: US)
  Receive Date: 20171109
  Receipt Date: 20180205
  Transmission Date: 20180508
  Serious: No
  Sender: FDA-Public Use
  Company Number: US-SA-2017SA168568

PATIENT
  Age: 14 Year
  Sex: Male

DRUGS (1)
  1. CHILDRENS XYZAL ALLERGY 24HR [Suspect]
     Active Substance: LEVOCETIRIZINE DIHYDROCHLORIDE
     Indication: HYPERSENSITIVITY
     Route: 048
     Dates: start: 20170826, end: 20170826

REACTIONS (6)
  - Sinus congestion [Recovered/Resolved]
  - Nasopharyngitis [Recovered/Resolved]
  - Product use issue [Unknown]
  - Sinus headache [Recovered/Resolved]
  - Dyspnoea [Recovered/Resolved]
  - Nasal congestion [Recovered/Resolved]

NARRATIVE: CASE EVENT DATE: 20170826
